FAERS Safety Report 5761098-1 (Version None)
Quarter: 2008Q2

REPORT INFORMATION
  Report Type: 
  Country: None (occurrence: None)
  Receive Date: 20080606
  Receipt Date: 20080528
  Transmission Date: 20081010
  Serious: Yes (Hospitalization)
  Sender: FDA-Public Use
  Company Number: JP-ABBOTT-08P-087-0449410-00

PATIENT
  Age: 78 Year
  Sex: Male

DRUGS (4)
  1. LEUPROLIDE ACETATE [Suspect]
     Indication: PROSTATE CANCER
     Route: 058
     Dates: start: 20060328, end: 20080317
  2. BICALUTAMIDE [Concomitant]
     Indication: PROSTATE CANCER
     Route: 048
     Dates: start: 20060315
  3. PROPIVERINE HYDROCHLORIDE [Concomitant]
     Indication: URINARY TRACT DISORDER
     Route: 048
     Dates: start: 20060315
  4. TAMSULOSIN HCL [Concomitant]
     Indication: URINARY TRACT DISORDER
     Route: 048
     Dates: start: 20060315

REACTIONS (3)
  - CEREBRAL INFARCTION [None]
  - DEMENTIA [None]
  - HYPERTENSION [None]
